FAERS Safety Report 20222511 (Version 1)
Quarter: 2021Q4

REPORT INFORMATION
  Report Type: Spontaneous
  Country: US (occurrence: US)
  Receive Date: 20211223
  Receipt Date: 20211223
  Transmission Date: 20220303
  Serious: No
  Sender: FDA-Public Use
  Company Number: US-ORGANON-O2112USA000578

PATIENT
  Age: 78 Year
  Sex: Female

DRUGS (10)
  1. ASMANEX [Suspect]
     Active Substance: MOMETASONE FUROATE
     Indication: Asthma
     Dosage: 1 PUFF TWICE DAILY
     Dates: start: 202111, end: 2021
  2. ZOCOR [Concomitant]
     Active Substance: SIMVASTATIN
     Dosage: UNK
  3. SINGULAIR [Concomitant]
     Active Substance: MONTELUKAST SODIUM
     Dosage: UNK
  4. AVAPRO [Concomitant]
     Active Substance: IRBESARTAN
     Dosage: UNK
  5. NORVASC [Concomitant]
     Active Substance: AMLODIPINE BESYLATE
     Dosage: UNK
  6. COREG [Concomitant]
     Active Substance: CARVEDILOL
     Dosage: UNK
  7. ASPIRIN [Concomitant]
     Active Substance: ASPIRIN
     Dosage: UNK
  8. CHOLECALCIFEROL [Concomitant]
     Active Substance: CHOLECALCIFEROL
     Dosage: UNK
  9. OSCAL [CALCIUM CARBONATE] [Concomitant]
     Dosage: UNK
  10. MINERALS\VITAMINS [Concomitant]
     Active Substance: MINERALS\VITAMINS
     Dosage: UNK

REACTIONS (5)
  - Dyspnoea [Recovered/Resolved]
  - Device malfunction [Unknown]
  - Poor quality device used [Unknown]
  - Circumstance or information capable of leading to medication error [Unknown]
  - Product dose omission issue [Unknown]

NARRATIVE: CASE EVENT DATE: 20211101
